FAERS Safety Report 5875861-X (Version None)
Quarter: 2008Q3

REPORT INFORMATION
  Report Type: 
  Country: None (occurrence: None)
  Receive Date: 20080909
  Receipt Date: 20080828
  Transmission Date: 20090109
  Serious: Yes (Other)
  Sender: FDA-Public Use
  Company Number: US-PFIZER INC-2008074392

PATIENT
  Sex: Female

DRUGS (5)
  1. CHANTIX [Suspect]
     Indication: SMOKING CESSATION THERAPY
     Dates: start: 20070101, end: 20070101
  2. ZOLOFT [Suspect]
     Indication: DEPRESSION
  3. XANAX [Suspect]
     Indication: ANXIETY
  4. WARFARIN SODIUM [Concomitant]
  5. DIGITEK [Concomitant]

REACTIONS (2)
  - DEPRESSION [None]
  - HEART VALVE REPLACEMENT [None]
